FAERS Safety Report 23793704 (Version 1)
Quarter: 2024Q2

REPORT INFORMATION
  Report Type: Spontaneous
  Country: FR (occurrence: FR)
  Receive Date: 20240429
  Receipt Date: 20240429
  Transmission Date: 20240716
  Serious: Yes (Other)
  Sender: FDA-Public Use
  Company Number: FR-SA-2024SA125606

PATIENT
  Age: 26 Year
  Sex: Female

DRUGS (5)
  1. DUPILUMAB [Suspect]
     Active Substance: DUPILUMAB
     Indication: Dermatitis atopic
     Dosage: 600 MG, 1X
  2. DUPILUMAB [Suspect]
     Active Substance: DUPILUMAB
     Dosage: 300 MG, QOW
  3. BARICITINIB [Suspect]
     Active Substance: BARICITINIB
     Indication: Dermatitis atopic
     Dosage: 4 MG, QD
  4. UPADACITINIB [Suspect]
     Active Substance: UPADACITINIB
     Indication: Dermatitis atopic
     Dosage: 15 MG, QD
  5. UPADACITINIB [Suspect]
     Active Substance: UPADACITINIB
     Dosage: 30 MG, QD

REACTIONS (7)
  - Cutaneous T-cell lymphoma stage IV [Unknown]
  - Condition aggravated [Unknown]
  - Unintentional use for unapproved indication [Unknown]
  - Papule [Unknown]
  - Macule [Unknown]
  - Palmoplantar keratoderma [Unknown]
  - Lymphadenopathy [Unknown]
